FAERS Safety Report 12723560 (Version 2)
Quarter: 2016Q4

REPORT INFORMATION
  Report Type: Spontaneous
  Country: US (occurrence: US)
  Receive Date: 20160908
  Receipt Date: 20161024
  Transmission Date: 20170207
  Serious: No
  Sender: FDA-Public Use
  Company Number: US-JNJFOC-20160901116

PATIENT
  Sex: Male
  Weight: 97.07 kg

DRUGS (9)
  1. NALFON [Concomitant]
     Active Substance: FENOPROFEN CALCIUM
     Route: 065
     Dates: end: 20160415
  2. GABAPENTIN. [Concomitant]
     Active Substance: GABAPENTIN
     Indication: HYPOAESTHESIA
     Dosage: AS DIRECTED TWICE OR THRICE A DAY
     Route: 065
  3. LISINOPRIL. [Concomitant]
     Active Substance: LISINOPRIL
     Indication: TYPE 2 DIABETES MELLITUS
     Dosage: IN THE MORNING
     Route: 048
  4. TRULICITY [Concomitant]
     Active Substance: DULAGLUTIDE
     Indication: TYPE 2 DIABETES MELLITUS
     Dosage: DOSE: 0.75 MG/0.5 ML
     Route: 058
  5. LOVASTATIN. [Concomitant]
     Active Substance: LOVASTATIN
     Indication: HYPERLIPIDAEMIA
     Dosage: WITH MEAL IN THE EVENING
     Route: 065
  6. GABAPENTIN. [Concomitant]
     Active Substance: GABAPENTIN
     Indication: HYPOAESTHESIA
     Route: 065
  7. INVOKAMET [Suspect]
     Active Substance: CANAGLIFLOZIN\METFORMIN HYDROCHLORIDE
     Indication: TYPE 2 DIABETES MELLITUS
     Dosage: 150/1000 MG, WITH THE MEAL IN MORNING
     Route: 048
     Dates: end: 20160703
  8. ASPIRIN. [Concomitant]
     Active Substance: ASPIRIN
     Indication: TYPE 2 DIABETES MELLITUS
     Dosage: AT BEDTIME
     Route: 048
     Dates: end: 20160703
  9. ZOFRAN [Concomitant]
     Active Substance: ONDANSETRON HYDROCHLORIDE
     Route: 065

REACTIONS (10)
  - Oral candidiasis [Unknown]
  - Dehydration [Unknown]
  - Polydipsia [Unknown]
  - Hepatic enzyme increased [Unknown]
  - Dermatitis [Unknown]
  - Weight decreased [Unknown]
  - Polyuria [Unknown]
  - Glycosylated haemoglobin increased [Unknown]
  - Hypoaesthesia [Unknown]
  - Treatment noncompliance [Unknown]
